FAERS Safety Report 6212562-2 (Version None)
Quarter: 2009Q2

REPORT INFORMATION
  Report Type: 
  Country: None (occurrence: None)
  Receive Date: 20090603
  Receipt Date: 20090526
  Transmission Date: 20091009
  Serious: Yes (Hospitalization)
  Sender: FDA-Public Use
  Company Number: US-AMGEN-KDL348838

PATIENT
  Sex: Female
  Weight: 74.9 kg

DRUGS (6)
  1. PROCRIT [Suspect]
     Indication: ANAEMIA
     Dates: start: 20090417
  2. LEUCOVORIN CALCIUM [Concomitant]
  3. KEFLEX [Concomitant]
     Dates: start: 20090101
  4. INTERFERON [Concomitant]
     Dates: end: 20090501
  5. RIBAVIRIN [Concomitant]
     Dates: end: 20090501
  6. FOLIC ACID [Concomitant]

REACTIONS (5)
  - FACIAL PALSY [None]
  - FOLATE DEFICIENCY [None]
  - HEMIPARESIS [None]
  - SURGERY [None]
  - VITAMIN B12 DEFICIENCY [None]
